FAERS Safety Report 9723730 (Version 1)
Quarter: 2013Q4

REPORT INFORMATION
  Report Type: Spontaneous
  Country: US (occurrence: US)
  Receive Date: 20131202
  Receipt Date: 20131202
  Transmission Date: 20140711
  Serious: Yes (Other)
  Sender: FDA-Public Use
  Company Number: US-TEVA-447511USA

PATIENT
  Age: 51 Year
  Sex: Female

DRUGS (2)
  1. METHOTREXATE [Suspect]
     Dosage: 7.5MG WEEKLY, THEN 25MG WEEKLY
     Route: 065
  2. METHOTREXATE [Suspect]
     Dosage: 25MG WEEKLY
     Route: 065

REACTIONS (3)
  - Neurotoxicity [Recovering/Resolving]
  - Dysphemia [Recovering/Resolving]
  - Fatigue [Unknown]
